FAERS Safety Report 19060140 (Version 1)
Quarter: 2021Q1

REPORT INFORMATION
  Report Type: Report from Study
  Country: None (occurrence: BR)
  Receive Date: 20210326
  Receipt Date: 20210326
  Transmission Date: 20210420
  Serious: Yes (Hospitalization, Disabling, Other)
  Sender: FDA-Public Use
  Company Number: BR-ABBVIE-21K-020-3824819-00

PATIENT
  Age: 54 Year
  Sex: Female
  Weight: 84 kg

DRUGS (14)
  1. LOSARTAN. [Concomitant]
     Active Substance: LOSARTAN
     Indication: HYPERTENSION
     Route: 048
  2. HYDROCHLOROTHIAZIDE. [Concomitant]
     Active Substance: HYDROCHLOROTHIAZIDE
     Indication: HYPERTENSION
  3. DULOXETINE HYDROCHLORIDE. [Concomitant]
     Active Substance: DULOXETINE HYDROCHLORIDE
     Indication: DEPRESSION
  4. METFORMIN HYDROCHLORIDE. [Concomitant]
     Active Substance: METFORMIN HYDROCHLORIDE
     Indication: BLOOD CHOLESTEROL
     Route: 048
     Dates: start: 2019
  5. PREGABALIN. [Concomitant]
     Active Substance: PREGABALIN
     Indication: PAIN MANAGEMENT
  6. DIPYRONE [Concomitant]
     Active Substance: DIPYRONE
     Indication: BACK PAIN
     Route: 048
  7. HUMIRA [Suspect]
     Active Substance: ADALIMUMAB
     Indication: ANKYLOSING SPONDYLITIS
     Dosage: UNSPECIFIED DOSE
     Route: 058
     Dates: start: 20130419, end: 20210217
  8. LOSARTAN. [Concomitant]
     Active Substance: LOSARTAN
     Indication: HYPERTENSION
  9. HYDROCHLOROTHIAZIDE. [Concomitant]
     Active Substance: HYDROCHLOROTHIAZIDE
     Indication: HYPERTENSION
     Route: 048
  10. DULOXETINE HYDROCHLORIDE. [Concomitant]
     Active Substance: DULOXETINE HYDROCHLORIDE
     Indication: PAIN MANAGEMENT
     Route: 048
  11. PREGABALIN. [Concomitant]
     Active Substance: PREGABALIN
     Indication: RHEUMATIC DISORDER
     Route: 048
     Dates: start: 2011, end: 20210315
  12. SIMVASTATIN. [Concomitant]
     Active Substance: SIMVASTATIN
     Indication: GLUCOSE TOLERANCE IMPAIRED
     Route: 048
  13. SIMVASTATIN. [Concomitant]
     Active Substance: SIMVASTATIN
     Indication: BLOOD CHOLESTEROL INCREASED
  14. DIPYRONE [Concomitant]
     Active Substance: DIPYRONE
     Route: 048
     Dates: end: 202101

REACTIONS (21)
  - Mobility decreased [Not Recovered/Not Resolved]
  - Gait disturbance [Recovered/Resolved]
  - Blood cholesterol increased [Not Recovered/Not Resolved]
  - Chest discomfort [Unknown]
  - Back pain [Unknown]
  - Spinal pain [Not Recovered/Not Resolved]
  - Muscular weakness [Recovering/Resolving]
  - Muscular weakness [Unknown]
  - Colitis [Recovered/Resolved]
  - Asthenia [Not Recovered/Not Resolved]
  - Swelling [Unknown]
  - COVID-19 [Recovered/Resolved]
  - Muscle spasms [Unknown]
  - Influenza [Unknown]
  - Gait disturbance [Recovering/Resolving]
  - Arthralgia [Not Recovered/Not Resolved]
  - Back pain [Not Recovered/Not Resolved]
  - Dysstasia [Not Recovered/Not Resolved]
  - Diarrhoea [Unknown]
  - Hospitalisation [Recovered/Resolved]
  - Back pain [Recovered/Resolved]

NARRATIVE: CASE EVENT DATE: 201304
